FAERS Safety Report 8832298 (Version 2)
Quarter: 2012Q4

REPORT INFORMATION
  Report Type: Report from Study
  Country: JP (occurrence: JP)
  Receive Date: 20121009
  Receipt Date: 20121227
  Transmission Date: 20130627
  Serious: Yes (Other)
  Sender: FDA-Public Use
  Company Number: JP-VERTEX PHARMACEUTICAL INC.-AE-2012-010739

PATIENT
  Age: 59 Year
  Sex: Male

DRUGS (16)
  1. VX-950 (TELAPREVIR) [Suspect]
     Indication: CHRONIC HEPATITIS C
     Dosage: 2250 mg, qd
     Route: 048
     Dates: start: 20120411, end: 20120427
  2. PEGINTRON                          /01543001/ [Suspect]
     Indication: CHRONIC HEPATITIS C
     Dosage: 1.5 ?g/kg, qw
     Route: 058
     Dates: start: 20120411, end: 20120427
  3. REBETOL [Suspect]
     Indication: CHRONIC HEPATITIS C
     Dosage: 800 mg, qd
     Route: 048
     Dates: start: 20120411, end: 20120427
  4. HUMIRA [Suspect]
     Indication: CROHN^S DISEASE
     Dosage: 40 mg/2 weeks
     Route: 058
  5. HUMIRA [Suspect]
     Dosage: 80 mg, qd
     Route: 058
     Dates: start: 20120711, end: 20120711
  6. HUMIRA [Suspect]
     Dosage: 80 mg, qd
     Route: 058
     Dates: start: 20120808, end: 20120808
  7. HUMIRA [Suspect]
     Dosage: 80 mg, qd
     Route: 058
     Dates: start: 20120906, end: 20120906
  8. URSO                               /00465701/ [Concomitant]
     Dosage: 600 mg, qd
     Route: 048
     Dates: start: 20110601
  9. PENTASA [Concomitant]
     Dosage: 1000 mg, qd
     Route: 048
  10. PENTASA [Concomitant]
     Dosage: 2000 mg, qd
     Route: 048
  11. PARIET [Concomitant]
     Dosage: 10 mg, qd
     Route: 048
     Dates: start: 20120419, end: 20120425
  12. MYSLEE [Concomitant]
     Dosage: 5 mg, qd
     Route: 048
     Dates: start: 20110427
  13. MYSLEE [Concomitant]
     Dosage: 5 mg, qd
     Route: 048
     Dates: start: 20120711, end: 20120724
  14. MYSLEE [Concomitant]
     Dosage: 5 mg, qd
     Route: 048
     Dates: start: 20120808, end: 20120821
  15. MYSLEE [Concomitant]
     Dosage: 5 mg, qd
     Route: 048
     Dates: start: 20120906, end: 20120919
  16. ELENTAL [Concomitant]
     Dosage: 400 g, qd
     Route: 048
     Dates: start: 20091227

REACTIONS (1)
  - Gastric ulcer [Recovered/Resolved]
